FAERS Safety Report 10481495 (Version 1)
Quarter: 2014Q3

REPORT INFORMATION
  Report Type: Spontaneous
  Country: US (occurrence: None)
  Receive Date: 20140908
  Receipt Date: 20140908
  Transmission Date: 20150326
  Serious: Yes (Other)
  Sender: FDA-Public Use
  Company Number: 383651

PATIENT
  Age: 35 Year
  Sex: Male
  Weight: 133.8 kg

DRUGS (5)
  1. LASIX /00032601/ (FUROSEMIDE) [Concomitant]
  2. CELEBREX [Concomitant]
     Active Substance: CELECOXIB
  3. GABAPENTIN (GABAPENTIN) [Concomitant]
     Active Substance: GABAPENTIN
  4. METFORMIN [Concomitant]
     Active Substance: METFORMIN HYDROCHLORIDE
  5. VICTOZA [Suspect]
     Active Substance: LIRAGLUTIDE
     Indication: TYPE 2 DIABETES MELLITUS
     Route: 058
     Dates: start: 20111025, end: 20120911

REACTIONS (1)
  - Renal failure chronic [None]

NARRATIVE: CASE EVENT DATE: 20130415
